FAERS Safety Report 10406886 (Version 2)
Quarter: 2014Q3

REPORT INFORMATION
  Report Type: Report from Study
  Country: BE (occurrence: BE)
  Receive Date: 20140825
  Receipt Date: 20140828
  Transmission Date: 20150326
  Serious: Yes (Other)
  Sender: FDA-Public Use
  Company Number: BE-US-EMD SERONO, INC.-7314702

PATIENT
  Sex: Male

DRUGS (7)
  1. ASAFLOW [Interacting]
     Active Substance: ASPIRIN
     Indication: POST PROCEDURAL MYOCARDIAL INFARCTION
     Route: 048
  2. PANTOPRAZOLE [Interacting]
     Active Substance: PANTOPRAZOLE SODIUM
     Indication: PRODUCT USED FOR UNKNOWN INDICATION
     Route: 048
  3. COVERSYL                           /00790701/ [Interacting]
     Active Substance: PERINDOPRIL
     Indication: PRODUCT USED FOR UNKNOWN INDICATION
     Route: 048
  4. REBIF [Suspect]
     Active Substance: INTERFERON BETA-1A
     Indication: MULTIPLE SCLEROSIS
     Route: 058
     Dates: start: 20010101, end: 20131230
  5. LIPITOR [Interacting]
     Active Substance: ATORVASTATIN CALCIUM
     Indication: PRODUCT USED FOR UNKNOWN INDICATION
     Route: 048
  6. EMCONCOR [Interacting]
     Active Substance: BISOPROLOL FUMARATE
     Indication: POST PROCEDURAL MYOCARDIAL INFARCTION
     Route: 048
  7. BRILIQUE [Interacting]
     Active Substance: TICAGRELOR
     Indication: POST PROCEDURAL MYOCARDIAL INFARCTION
     Route: 048

REACTIONS (3)
  - Drug interaction [Unknown]
  - Influenza like illness [Recovered/Resolved]
  - Myocardial infarction [Unknown]

NARRATIVE: CASE EVENT DATE: 20131108
